FAERS Safety Report 22946195 (Version 4)
Quarter: 2023Q4

REPORT INFORMATION
  Report Type: Report from Study
  Country: US (occurrence: US)
  Receive Date: 20230915
  Receipt Date: 20231225
  Transmission Date: 20240109
  Serious: No
  Sender: FDA-Public Use
  Company Number: US-ACADIA PHARMACEUTICALS INC.-ACA-2023-TRF-003662

PATIENT
  Age: 20 Year
  Sex: Female

DRUGS (47)
  1. DAYBUE [Suspect]
     Active Substance: TROFINETIDE
     Indication: Rett syndrome
     Dosage: 10 MILLILITER, BID AND INCREASE 10ML EVERY WEEK UNTIL REACHED 40ML TWICE DAILY
     Dates: start: 20230804
  2. DAYBUE [Suspect]
     Active Substance: TROFINETIDE
     Dosage: 40 MILLILITER, BID VIA G TUBE
  3. DAYBUE [Suspect]
     Active Substance: TROFINETIDE
     Dosage: 40 MILLILITER, BID VIA G TUBE
  4. BACLOFEN [Concomitant]
     Active Substance: BACLOFEN
     Dosage: 20 MILLIGRAM, TID
     Route: 048
  5. BACLOFEN [Concomitant]
     Active Substance: BACLOFEN
     Dosage: 10 MILLIGRAM, TID
     Route: 048
  6. BACLOFEN [Concomitant]
     Active Substance: BACLOFEN
     Dosage: 30 MILLIGRAM, TID
     Dates: start: 20230603
  7. VALPROIC ACID [Concomitant]
     Active Substance: VALPROIC ACID
     Dosage: 400 MILLIGRAM, TID
     Dates: start: 20230603
  8. VALPROIC ACID [Concomitant]
     Active Substance: VALPROIC ACID
     Dosage: 250 MG/5 ML ORAL LIQUID, 8 ML G-TUBE TID
  9. KEPPRA [Concomitant]
     Active Substance: LEVETIRACETAM
     Dosage: 100 MG/ML , 1,500 MG, ORAL BID
  10. KEPPRA [Concomitant]
     Active Substance: LEVETIRACETAM
     Dosage: 1500 MILLIGRAM, TID
     Dates: start: 20230603
  11. ERYTHROMYCIN ETHYL SUCCINATE [ERYTHROMYCIN ETHYLSUCCINATE] [Concomitant]
     Indication: Prophylaxis
     Dosage: 100 MILLIGRAM, QD
     Dates: start: 20230603
  12. ERYTHROMYCIN ETHYL SUCCINATE [ERYTHROMYCIN ETHYLSUCCINATE] [Concomitant]
     Dosage: 200 MG/5 ML ORAL LIQUID, 2.5 ML G-TUBE
  13. OMEPRAZOLE [Concomitant]
     Active Substance: OMEPRAZOLE
     Dosage: 10 MILLIGRAM, QD
     Route: 048
     Dates: start: 20230603
  14. OMEPRAZOLE [Concomitant]
     Active Substance: OMEPRAZOLE
     Dosage: 15 MILLIGRAM, QD
     Route: 048
     Dates: start: 20230703
  15. CELEBREX [Concomitant]
     Active Substance: CELECOXIB
     Dosage: UNK
  16. MIRALAX [Concomitant]
     Active Substance: POLYETHYLENE GLYCOL 3350
     Dosage: 6 GRAM, QD
  17. PROBIOTICS NOS [Concomitant]
     Active Substance: PROBIOTICS NOS
  18. DEXTROSE;POTASSIUM CHLORIDE;SODIUM CHLORIDE [Concomitant]
     Dosage: 20 MEG/L 1,000 ML
     Route: 048
     Dates: start: 20230602
  19. LANSOPRAZOLE [Concomitant]
     Active Substance: LANSOPRAZOLE
     Dosage: 3MG/ML ORAL SUSPENSION, 5ML
     Route: 048
  20. LANSOPRAZOLE [Concomitant]
     Active Substance: LANSOPRAZOLE
     Dosage: 15 MILLIGRAM, QD
     Route: 048
     Dates: start: 20230603
  21. POLYETHYLENE GLYCOL 3350 [Concomitant]
     Active Substance: POLYETHYLENE GLYCOL 3350
     Dosage: 6 GRAM QD
     Dates: start: 20230603
  22. POLYETHYLENE GLYCOL 3350 [Concomitant]
     Active Substance: POLYETHYLENE GLYCOL 3350
     Dosage: 6 GRAM, QD
     Dates: start: 20230603
  23. IBUPROFEN [Concomitant]
     Active Substance: IBUPROFEN
     Indication: Pyrexia
     Dosage: 100 MG/ 5ML ORAL SUSPENSION, 20ML
  24. IBUPROFEN [Concomitant]
     Active Substance: IBUPROFEN
     Indication: Pain
  25. CELECOXIB [Concomitant]
     Active Substance: CELECOXIB
     Dosage: 50 MILLIGRAM, BID
     Route: 048
  26. CLONAZEPAM [Concomitant]
     Active Substance: CLONAZEPAM
     Indication: Seizure
     Dosage: 0.5 MILLIGRAM, TID
     Route: 048
  27. CLONAZEPAM [Concomitant]
     Active Substance: CLONAZEPAM
     Dosage: 0.5 MG, TID
     Dates: start: 20230603
  28. LIDOCAINE [Concomitant]
     Active Substance: LIDOCAINE
     Indication: Pain
     Dosage: 4 PERCENT, QID
     Dates: start: 20231025
  29. LIDOCAINE [Concomitant]
     Active Substance: LIDOCAINE
     Dosage: 4 PERCENT, QID
     Dates: start: 20230607
  30. CEFDINIR [Concomitant]
     Active Substance: CEFDINIR
     Dosage: 250 MG/ML, 6ML
     Route: 048
  31. CEFDINIR [Concomitant]
     Active Substance: CEFDINIR
     Dosage: 250 MG/5 ML ORAL LIQUID, 12 ML
     Route: 048
  32. MORPHINE [Concomitant]
     Active Substance: MORPHINE
     Indication: Pain
     Dosage: IV PUSH, 1 MILLIGRAM
     Dates: start: 20230603
  33. CEFTRIAXONE [Concomitant]
     Active Substance: CEFTRIAXONE\CEFTRIAXONE SODIUM
     Indication: Pneumonia
     Dosage: 2000 MILLIGRAM
     Dates: start: 20230603, end: 20230603
  34. CEFTRIAXONE [Concomitant]
     Active Substance: CEFTRIAXONE\CEFTRIAXONE SODIUM
     Dosage: 1000 MILLIGRAM
     Dates: start: 20230602, end: 20230602
  35. ACETAMINOPHEN [Concomitant]
     Active Substance: ACETAMINOPHEN
     Indication: Pyrexia
     Dosage: 650 MILLIGRAM
     Route: 048
     Dates: start: 20230603
  36. ACETAMINOPHEN [Concomitant]
     Active Substance: ACETAMINOPHEN
     Indication: Pain
     Dosage: 160MG/5ML ORAL LIQUID, 18.75 ML
  37. PNEUMOCOCCAL VACCINE, POLYVALENT 23 [Concomitant]
     Active Substance: PNEUMOCOCCAL VACCINE, POLYVALENT 23
     Dosage: 0.5 ML INTRAMUSCULAR VACCINE
  38. LINEZOLID [Concomitant]
     Active Substance: LINEZOLID
     Dosage: 600 MILLIGRAM, BID
     Route: 048
  39. INFLUENZA VIRUS VACCINE [Concomitant]
     Active Substance: INFLUENZA VIRUS VACCINE
     Dosage: 0.5 ML INTRAMUSCULAR
  40. DORNASE ALFA [Concomitant]
     Active Substance: DORNASE ALFA
     Dosage: 2.5 MG/2.5 ML INHALATION SOLUTION, QD
  41. ABOBOTULINUMTOXINA [Concomitant]
     Active Substance: ABOBOTULINUMTOXINA
     Dosage: 900 UNITS, INTRAMUSCULAR
     Dates: start: 20231025
  42. ABOBOTULINUMTOXINA [Concomitant]
     Active Substance: ABOBOTULINUMTOXINA
     Dosage: 1200 UNITS, INTRAMUSCULAR UNK
     Dates: start: 20230301
  43. MEROPENEM [Concomitant]
     Active Substance: MEROPENEM
     Indication: Pneumonia
     Dosage: 1000 MILLIGRAM
     Dates: start: 20230602, end: 20230602
  44. ALBUTEROL\IPRATROPIUM [Concomitant]
     Active Substance: ALBUTEROL\IPRATROPIUM
     Dosage: DUONEB 0.5 MG-2.5 MG/3ML INHALATION SOLUTION, 3ML
     Dates: start: 20230602, end: 20230602
  45. LACTATED RINGERS SOLUTION [Concomitant]
     Active Substance: CALCIUM CHLORIDE\POTASSIUM CHLORIDE\SODIUM CHLORIDE\SODIUM LACTATE
     Dosage: 1000 MILLILITER
     Dates: start: 20230602, end: 20230602
  46. CARBIDOPA\LEVODOPA [Concomitant]
     Active Substance: CARBIDOPA\LEVODOPA
     Dosage: 25 MG-100 MG, TID
     Route: 048
  47. LEVALBUTEROL HYDROCHLORIDE [Concomitant]
     Active Substance: LEVALBUTEROL HYDROCHLORIDE
     Indication: Wheezing
     Dosage: 1.25 MG/0.5ML, QID INHALATION SOLUTION

REACTIONS (7)
  - Flatulence [Recovered/Resolved]
  - Dermatitis diaper [Recovered/Resolved]
  - Skin irritation [Recovered/Resolved]
  - Gastrostomy tube site complication [Recovered/Resolved]
  - pH urine decreased [Recovered/Resolved]
  - Underdose [Recovered/Resolved]
  - Diarrhoea [Not Recovered/Not Resolved]

NARRATIVE: CASE EVENT DATE: 20230801
